FAERS Safety Report 15508073 (Version 5)
Quarter: 2019Q4

REPORT INFORMATION
  Report Type: Spontaneous
  Country: US (occurrence: US)
  Receive Date: 20181016
  Receipt Date: 20191004
  Transmission Date: 20200122
  Serious: Yes (Hospitalization, Other)
  Sender: FDA-Public Use
  Company Number: US-PFIZER INC-2018419512

PATIENT
  Age: 73 Year
  Sex: Female

DRUGS (2)
  1. LYRICA [Suspect]
     Active Substance: PREGABALIN
     Indication: FIBROMYALGIA
     Dosage: 150 MG, 3X/DAY
     Route: 048
     Dates: start: 20170412
  2. LYRICA [Suspect]
     Active Substance: PREGABALIN
     Indication: NERVE INJURY
     Dosage: 150 MG, 2X/DAY
     Route: 048

REACTIONS (6)
  - Pain in extremity [Unknown]
  - Cerebrovascular accident [Unknown]
  - Ill-defined disorder [Unknown]
  - Fatigue [Unknown]
  - Crying [Unknown]
  - Nervousness [Unknown]
